FAERS Safety Report 4387742-1 (Version None)
Quarter: 2004Q2

REPORT INFORMATION
  Report Type: 
  Country: None (occurrence: None)
  Receive Date: 20040625
  Receipt Date: 20040621
  Transmission Date: 20050107
  Serious: Yes (Hospitalization)
  Sender: FDA-Public Use
  Company Number: 2004-02730

PATIENT
  Age: 6 Day
  Sex: Male
  Weight: 4.6 kg

DRUGS (4)
  1. FUROSEMIDE (WATSON LABORATORIES) [Suspect]
     Indication: FALLOT'S TETRALOGY
     Dosage: 1 MG/KG, DAILY, UNKNOWN
  2. DIAZOXIDE [Suspect]
     Indication: HYPERINSULINISM
     Dosage: 3.5 MG/KG, DAILY, UNK
  3. SPIRONOLACTONE [Suspect]
     Indication: FALLOT'S TETRALOGY
     Dosage: 0.4 MG/KG, DAILY, UNK
  4. ACETYLSALICYLIC ACID SRT [Suspect]
     Indication: FALLOT'S TETRALOGY
     Dosage: 5 MG/KG, DAILY, UNK

REACTIONS (3)
  - DRUG INTERACTION [None]
  - HYPERGLYCAEMIA [None]
  - NEONATAL DISORDER [None]
